FAERS Safety Report 7969756-5 (Version None)
Quarter: 2011Q4

REPORT INFORMATION
  Report Type: 
  Country: None (occurrence: None)
  Receive Date: 20111121
  Receipt Date: 20110831
  Transmission Date: 20120403
  Serious: No
  Sender: FDA-Public Use
  Company Number: 1000023397

PATIENT
  Age: 57 Year
  Sex: Female

DRUGS (6)
  1. ALDACTONE [Concomitant]
  2. VIIBRYD [Suspect]
     Indication: DEPRESSION
     Dosage: 10 MG (10 MG,1 IN 1 D),ORAL ; 20 MG (20 MG,1 IN 1 D),ORAL ; 40 MG (40 MG,1 IN 1 D),ORAL
     Route: 048
     Dates: start: 20110801, end: 20110801
  3. VIIBRYD [Suspect]
     Indication: DEPRESSION
     Dosage: 10 MG (10 MG,1 IN 1 D),ORAL ; 20 MG (20 MG,1 IN 1 D),ORAL ; 40 MG (40 MG,1 IN 1 D),ORAL
     Route: 048
     Dates: start: 20110801, end: 20110801
  4. VIIBRYD [Suspect]
     Indication: DEPRESSION
     Dosage: 10 MG (10 MG,1 IN 1 D),ORAL ; 20 MG (20 MG,1 IN 1 D),ORAL ; 40 MG (40 MG,1 IN 1 D),ORAL
     Route: 048
     Dates: start: 20110801
  5. CENESTIN (ESTROGENS CONJUGATED) (ESTROGENS CONJUGATED) [Concomitant]
  6. SIMVASTATIN [Concomitant]

REACTIONS (1)
  - NAUSEA [None]
